FAERS Safety Report 4484435-7 (Version None)
Quarter: 2004Q4

REPORT INFORMATION
  Report Type: 
  Country: None (occurrence: None)
  Receive Date: 20041021
  Receipt Date: 20041006
  Transmission Date: 20050328
  Serious: Yes (Other)
  Sender: FDA-Public Use
  Company Number: CIO04021840

PATIENT
  Sex: Male

DRUGS (1)
  1. NYQUIL COLD/FLU DOXYLAMINE (DOXYLAMINE SUCCINATE 6.25 MG, PSEUDOEPHEDR [Suspect]
     Dosage: 1 LIQCAP, 1/DAY FOR 1 DAY, ORAL
     Route: 048
     Dates: start: 20041006, end: 20041006

REACTIONS (2)
  - FOREIGN BODY TRAUMA [None]
  - THROAT IRRITATION [None]
